FAERS Safety Report 9071724 (Version 6)
Quarter: 2013Q3

REPORT INFORMATION
  Report Type: Spontaneous
  Country: JP (occurrence: JP)
  Receive Date: 20130206
  Receipt Date: 20130816
  Transmission Date: 20140515
  Serious: Yes (Life-Threatening, Hospitalization, Disabling)
  Sender: FDA-Public Use
  Company Number: JP-B.I. PHARMACEUTICALS,INC./RIDGEFIELD-2013-BI-03176NB

PATIENT
  Age: 71 Year
  Sex: Male
  Weight: 70 kg

DRUGS (12)
  1. PRAZAXA [Suspect]
     Indication: ATRIAL FIBRILLATION
     Dosage: 220 MG
     Route: 048
     Dates: start: 20121109, end: 20130130
  2. LOXONIN [Suspect]
     Indication: BACK PAIN
     Dosage: 60 MG
     Route: 048
     Dates: start: 20130119, end: 20130130
  3. LOXONIN [Suspect]
     Dosage: 180 MG
     Route: 048
     Dates: start: 20130119, end: 20130130
  4. TANATRIL [Concomitant]
     Indication: HYPERTENSION
     Dosage: 2.5 MG
     Route: 048
     Dates: start: 20110526, end: 20130201
  5. SUNRYTHM [Concomitant]
     Indication: ATRIAL FIBRILLATION
     Dosage: 75 MG
     Route: 048
     Dates: start: 20110526, end: 20130201
  6. ARTIST [Concomitant]
     Indication: HYPERTENSION
     Dosage: 5 MG
     Route: 048
     Dates: start: 20110526
  7. MEVALOTIN [Concomitant]
     Indication: HYPERLIPIDAEMIA
     Dosage: 5 MG
     Route: 048
     Dates: start: 20111013, end: 20121130
  8. MUCOSTA [Concomitant]
     Indication: GASTRITIS PROPHYLAXIS
     Dosage: 300 MG
     Route: 048
     Dates: start: 20130119, end: 20130130
  9. TAKEPRON [Concomitant]
     Indication: GASTRIC MUCOSAL LESION
     Dosage: 15 MG
     Route: 048
     Dates: start: 20130123
  10. BUSCOPAN [Concomitant]
     Dosage: 10 MG
     Route: 048
  11. BAYASPIRIN [Concomitant]
     Indication: ANGINA PECTORIS
     Dosage: 100 MG
     Route: 048
     Dates: start: 20110526, end: 20121109
  12. WARFARIN [Concomitant]
     Indication: THROMBOSIS PROPHYLAXIS
     Dosage: 3.25 MG
     Route: 048
     Dates: start: 20120914, end: 20121109

REACTIONS (5)
  - Duodenal ulcer haemorrhage [Not Recovered/Not Resolved]
  - Renal failure acute [Not Recovered/Not Resolved]
  - Activated partial thromboplastin time prolonged [Unknown]
  - Plasma cell myeloma [Not Recovered/Not Resolved]
  - Lumbar spinal stenosis [Unknown]
